FAERS Safety Report 9352559 (Version 1)
Quarter: 2013Q2

REPORT INFORMATION
  Report Type: Report from Study
  Country: IS (occurrence: IS)
  Receive Date: 20130618
  Receipt Date: 20130618
  Transmission Date: 20140414
  Serious: Yes (Hospitalization)
  Sender: FDA-Public Use
  Company Number: IS-ROCHE-1235025

PATIENT
  Sex: Male

DRUGS (8)
  1. BEVACIZUMAB [Suspect]
     Indication: COLORECTAL CANCER METASTATIC
     Dosage: CYCLE 3 THE LAST CYCLE ADMINISTERED: 29/MAY/2013 AND THE LAST DOSE ADMINISTERED WAS 275 MG.
     Route: 065
     Dates: start: 20130417
  2. 5-FLUOROURACIL [Suspect]
     Indication: COLORECTAL CANCER METASTATIC
     Dosage: CYCLE 3 THE LAST CYCLE ADMINISTERED: 29/MAY/2013 AND THE LAST DOSE ADMINISTERED WAS 650 MG IN BOLUS
     Route: 042
     Dates: start: 20130417
  3. ELVORINE [Suspect]
     Indication: COLORECTAL CANCER METASTATIC
     Dosage: CYCLE 3 THE LAST CYCLE ADMINISTERED: 29/MAY/2013 AND THE LAST DOSE ADMINISTERED WAS 336 MG.
     Route: 065
     Dates: start: 20130417
  4. NOVONORM [Concomitant]
     Indication: TYPE 2 DIABETES MELLITUS
     Route: 065
  5. PLAVIX [Concomitant]
  6. RAMIPRIL [Concomitant]
  7. EUPANTOL [Concomitant]
  8. ALLOPURINOL [Concomitant]

REACTIONS (2)
  - General physical health deterioration [Unknown]
  - Abdominal pain [Unknown]
